FAERS Safety Report 8612088-2 (Version None)
Quarter: 2012Q3

REPORT INFORMATION
  Report Type: 
  Country: None (occurrence: None)
  Receive Date: 20120822
  Receipt Date: 20120813
  Transmission Date: 20120928
  Serious: No
  Sender: FDA-Public Use
  Company Number: US-ASTRAZENECA-2012SE57199

PATIENT
  Age: 65 Year
  Sex: Male

DRUGS (8)
  1. CRESTOR [Suspect]
     Indication: DYSLIPIDAEMIA
     Route: 048
  2. LOSARTAN POTASSIUM [Concomitant]
  3. FENOFIBRATE [Concomitant]
  4. GLIMEPIRIDE [Concomitant]
  5. METOPROLOL TARTRATE [Concomitant]
  6. IBUPROFEN [Concomitant]
  7. JANUMET [Concomitant]
  8. ZOLPIDEM [Concomitant]

REACTIONS (1)
  - WEIGHT INCREASED [None]
